FAERS Safety Report 7780087-9 (Version None)
Quarter: 2011Q3

REPORT INFORMATION
  Report Type: 
  Country: None (occurrence: None)
  Receive Date: 20110922
  Receipt Date: 20110913
  Transmission Date: 20111222
  Serious: Yes (Other)
  Sender: FDA-Public Use
  Company Number: 2011MA013675

PATIENT
  Age: 29 Year
  Sex: Female

DRUGS (11)
  1. CETIRIZINE HCL [Concomitant]
  2. CODEINE SULFATE [Concomitant]
  3. PROPANTHELINE BROMIDE [Concomitant]
  4. INFLUENZA VIRUS [Concomitant]
  5. TEMAZEPAM [Concomitant]
  6. SERETIDE [Concomitant]
  7. FLOXACILLIN SODIUM [Concomitant]
  8. NSAIDS [Concomitant]
  9. NAPROXEN [Suspect]
     Dates: start: 20110909
  10. CO-DYDRAMOL [Concomitant]
  11. ALBUTEROL [Concomitant]

REACTIONS (3)
  - ASTHMA [None]
  - CHEST DISCOMFORT [None]
  - DRUG HYPERSENSITIVITY [None]
